FAERS Safety Report 23990486 (Version 2)
Quarter: 2024Q3

REPORT INFORMATION
  Report Type: Spontaneous
  Country: SI (occurrence: SI)
  Receive Date: 20240619
  Receipt Date: 20240709
  Transmission Date: 20241016
  Serious: Yes (Other)
  Sender: BRISTOL MYERS SQUIBB
  Company Number: SI-BRISTOL-MYERS SQUIBB COMPANY-2024-096206

PATIENT
  Age: 69 Year
  Sex: Male

DRUGS (5)
  1. NIVOLUMAB [Suspect]
     Active Substance: NIVOLUMAB
     Indication: Clear cell renal cell carcinoma
     Dosage: FIRST 3 ADMINISTRATIONS
     Dates: start: 2021
  2. NIVOLUMAB [Suspect]
     Active Substance: NIVOLUMAB
     Dosage: 4TH CYCLE
     Dates: start: 20210722
  3. NIVOLUMAB [Suspect]
     Active Substance: NIVOLUMAB
     Dosage: MAINTENANCE TREATMENT
     Route: 042
  4. IPILIMUMAB [Suspect]
     Active Substance: IPILIMUMAB
     Indication: Clear cell renal cell carcinoma
     Dosage: FIRST THREE ADMINISTRATIONS
  5. IPILIMUMAB [Suspect]
     Active Substance: IPILIMUMAB
     Dosage: 4TH CYCLE
     Dates: start: 20210722

REACTIONS (4)
  - General physical health deterioration [Recovered/Resolved]
  - Immune-mediated nephritis [Recovered/Resolved]
  - Gastrointestinal disorder [Unknown]
  - Renal impairment [Recovered/Resolved]

NARRATIVE: CASE EVENT DATE: 20210601
